FAERS Safety Report 14634449 (Version 1)
Quarter: 2018Q1

REPORT INFORMATION
  Report Type: Spontaneous
  Country: HR (occurrence: HR)
  Receive Date: 20180314
  Receipt Date: 20180314
  Transmission Date: 20180509
  Serious: Yes (Congenital Anomaly, Other)
  Sender: FDA-Public Use
  Company Number: HR-IPSEN BIOPHARMACEUTICALS, INC.-2017-15813

PATIENT
  Age: 39 Year
  Sex: Male
  Weight: 101 kg

DRUGS (6)
  1. IRINOTECAN LIPOSOME [Suspect]
     Active Substance: IRINOTECAN
     Indication: OFF LABEL USE
     Dosage: 300 MG
     Route: 042
     Dates: end: 20141111
  2. AVASTIN [Suspect]
     Active Substance: BEVACIZUMAB
     Dosage: 600 MG
     Route: 042
     Dates: end: 20150624
  3. XELODA [Suspect]
     Active Substance: CAPECITABINE
     Dosage: 2X3 TABLETS
     Route: 042
     Dates: end: 20150624
  4. AVASTIN [Suspect]
     Active Substance: BEVACIZUMAB
     Indication: COLORECTAL CANCER METASTATIC
     Dosage: 600 MG
     Route: 042
     Dates: start: 20130917
  5. XELODA [Suspect]
     Active Substance: CAPECITABINE
     Indication: COLORECTAL CANCER METASTATIC
     Dosage: 2X3 TABLETS
     Route: 042
     Dates: start: 20130917
  6. IRINOTECAN LIPOSOME [Suspect]
     Active Substance: IRINOTECAN
     Indication: COLORECTAL CANCER METASTATIC
     Dosage: 300 MG
     Route: 042
     Dates: start: 20130917

REACTIONS (3)
  - Inappropriate schedule of drug administration [Unknown]
  - Off label use [Unknown]
  - Neutropenia [Recovered/Resolved]

NARRATIVE: CASE EVENT DATE: 20131009
